FAERS Safety Report 8039168-7 (Version None)
Quarter: 2012Q1

REPORT INFORMATION
  Report Type: 
  Country: None (occurrence: None)
  Receive Date: 20120111
  Receipt Date: 20111213
  Transmission Date: 20120608
  Serious: No
  Sender: FDA-Public Use
  Company Number: US-AMGEN-USASP2011066468

PATIENT
  Age: 52 Year
  Sex: Male

DRUGS (1)
  1. ENBREL [Suspect]
     Indication: PSORIASIS
     Dosage: UNK
     Dates: start: 20110813

REACTIONS (6)
  - MALAISE [None]
  - DIZZINESS [None]
  - VOMITING [None]
  - FATIGUE [None]
  - ASTHENIA [None]
  - HYPERHIDROSIS [None]
